FAERS Safety Report 15932419 (Version 3)
Quarter: 2019Q2

REPORT INFORMATION
  Report Type: Spontaneous
  Country: US (occurrence: US)
  Receive Date: 20190207
  Receipt Date: 20190621
  Transmission Date: 20190711
  Serious: Yes (Other)
  Sender: FDA-Public Use
  Company Number: US-ASTRAZENECA-2019SE11893

PATIENT
  Sex: Male

DRUGS (13)
  1. AMOX [Concomitant]
     Active Substance: UNSPECIFIED INGREDIENT
  2. NEXIUM 24HR [Suspect]
     Active Substance: ESOMEPRAZOLE MAGNESIUM
     Route: 048
     Dates: start: 2015
  3. PREVACID 24 HR [Suspect]
     Active Substance: LANSOPRAZOLE
     Route: 065
     Dates: start: 2015
  4. OXYCODONE [Concomitant]
     Active Substance: OXYCODONE
  5. DIAZEPAM. [Concomitant]
     Active Substance: DIAZEPAM
  6. PRILOSEC OTC [Suspect]
     Active Substance: OMEPRAZOLE MAGNESIUM
     Route: 048
     Dates: start: 2015
  7. LISINOPRIL. [Concomitant]
     Active Substance: LISINOPRIL
  8. FLUTICASONE. [Concomitant]
     Active Substance: FLUTICASONE
  9. TAMSULOSIN [Concomitant]
     Active Substance: TAMSULOSIN
  10. AZITHROMYCIN ANHYDROUS. [Concomitant]
     Active Substance: AZITHROMYCIN ANHYDROUS
  11. PREDNISONE. [Concomitant]
     Active Substance: PREDNISONE
  12. ETODOLAC. [Concomitant]
     Active Substance: ETODOLAC
  13. CIPROFLOXACIN. [Concomitant]
     Active Substance: CIPROFLOXACIN

REACTIONS (3)
  - Chronic kidney disease [Not Recovered/Not Resolved]
  - Hyperparathyroidism secondary [Unknown]
  - End stage renal disease [Unknown]
